FAERS Safety Report 6515499-4 (Version None)
Quarter: 2009Q4

REPORT INFORMATION
  Report Type: 
  Country: None (occurrence: None)
  Receive Date: 20091223
  Receipt Date: 20091217
  Transmission Date: 20100525
  Serious: No
  Sender: FDA-Public Use
  Company Number: PHHY2009DE49947

PATIENT
  Sex: Female

DRUGS (2)
  1. FEMARA [Suspect]
     Indication: BREAST CANCER
     Dosage: 2.5 MG, QD
     Route: 048
     Dates: start: 20090821, end: 20091007
  2. BEGRIVAC [Concomitant]
     Indication: INFLUENZA IMMUNISATION
     Dosage: UNK
     Dates: start: 20090821, end: 20090821

REACTIONS (2)
  - AGEUSIA [None]
  - ANOSMIA [None]
